FAERS Safety Report 18535780 (Version 1)
Quarter: 2020Q4

REPORT INFORMATION
  Report Type: Spontaneous
  Country: US (occurrence: US)
  Receive Date: 20201123
  Receipt Date: 20201123
  Transmission Date: 20210114
  Serious: No
  Sender: FDA-Public Use
  Company Number: US-ROCHE-2530682

PATIENT
  Age: 37 Year
  Sex: Female
  Weight: 104.42 kg

DRUGS (1)
  1. TAMIFLU [Suspect]
     Active Substance: OSELTAMIVIR PHOSPHATE
     Indication: INFLUENZA A VIRUS TEST POSITIVE
     Route: 048
     Dates: start: 20200119

REACTIONS (4)
  - Dyspnoea [Recovered/Resolved]
  - Anxiety [Not Recovered/Not Resolved]
  - Paranoia [Not Recovered/Not Resolved]
  - Abnormal dreams [Not Recovered/Not Resolved]

NARRATIVE: CASE EVENT DATE: 20200119
